FAERS Safety Report 8245229-X (Version None)
Quarter: 2012Q1

REPORT INFORMATION
  Report Type: 
  Country: None (occurrence: None)
  Receive Date: 20120329
  Receipt Date: 20120328
  Transmission Date: 20120608
  Serious: Yes (Death, Other)
  Sender: FDA-Public Use
  Company Number: PHHY2012DE006584

PATIENT
  Age: 44 Year
  Sex: Male

DRUGS (5)
  1. GILENYA [Suspect]
     Dosage: 0.5 MG, QD
     Route: 048
     Dates: start: 20110722, end: 20110831
  2. SATIVEX [Suspect]
     Dosage: UNK UKN, UNK
     Dates: start: 20110101, end: 20110101
  3. LIORESAL [Concomitant]
     Indication: MUSCLE SPASTICITY
     Dosage: 10 MG, TID
     Route: 048
     Dates: start: 20080101
  4. GILENYA [Suspect]
     Dosage: 0.5 MG, DAILY
     Dates: start: 20110901, end: 20111115
  5. GILENYA [Suspect]
     Indication: MULTIPLE SCLEROSIS
     Dosage: 0.5 MG, QD
     Route: 048
     Dates: start: 20110617, end: 20110710

REACTIONS (3)
  - SUICIDAL IDEATION [None]
  - MULTIPLE SCLEROSIS RELAPSE [None]
  - COMPLETED SUICIDE [None]
